FAERS Safety Report 10028098 (Version 1)
Quarter: 2014Q1

REPORT INFORMATION
  Report Type: Spontaneous
  Country: GB (occurrence: None)
  Receive Date: 20140304
  Receipt Date: 20140304
  Transmission Date: 20141002
  Serious: Yes (Life-Threatening, Hospitalization, Disabling)
  Sender: FDA-Public Use
  Company Number: B0740896A

PATIENT
  Sex: Female
  Weight: 63.37 kg

DRUGS (18)
  1. PAROXETINE HYDROCHLORIDE [Suspect]
     Indication: DEPRESSION
     Dosage: 20 MG / THREE TIMES PER DAY / ORAL
     Route: 048
     Dates: start: 19990801, end: 201105
  2. PAROXETINE HYDROCHLORIDE [Suspect]
     Indication: DEPRESSION
     Dosage: 40 MG / PER DAY / ORAL
     Route: 048
     Dates: start: 201105, end: 20110706
  3. QUETIAPINE FUMARATE [Suspect]
     Indication: PSYCHOTIC DISORDER
     Dosage: 300 MG / UNK / ORAL
     Route: 048
     Dates: start: 20110224, end: 20110506
  4. LORAZEPAM [Suspect]
     Indication: SEDATION
     Dosage: 1 MG / FOUR TIMES PER DAY / ORAL
     Route: 048
     Dates: start: 20110523, end: 20110627
  5. CLONAZEPAM [Suspect]
     Indication: SEDATION
     Dosage: UNK / UNK / ORAL
     Route: 048
     Dates: start: 20110224, end: 20110410
  6. PROCYCLIDINE HCL [Suspect]
     Indication: EXTRAPYRAMIDAL DISORDER
     Dosage: 5 MG / PER DAY / ORAL
     Route: 048
     Dates: start: 20110503, end: 20110510
  7. MIRTAZAPINE [Suspect]
     Indication: DEPRESSION
     Dosage: 30 MG / PER DAY / ORAL
     Route: 048
     Dates: start: 20100923, end: 20101108
  8. TRAMADOL HYDROCHLORIDE [Suspect]
     Indication: NECK PAIN
     Dosage: UNK / UNK / ORAL
     Route: 048
     Dates: start: 20081201, end: 20101210
  9. DIAZEPAM [Suspect]
     Indication: MUSCLE SPASMS
     Dosage: 20 MG / PER DAY / UNKNOWN
     Dates: start: 20110725
  10. AMITRIPTYLINE [Suspect]
     Indication: MUSCLE SPASMS
     Dosage: 25 MG / AT NIGHT / UNKNOWN
     Dates: start: 20110810
  11. CODEINE [Suspect]
     Indication: ANALGESIC THERAPY
     Dosage: UNK / PER DAY / ORAL
     Route: 048
     Dates: start: 20110615, end: 20110723
  12. DOMPERIDONE [Suspect]
     Indication: PRODUCT USED FOR UNKNOWN INDICATION
  13. OMEPRAZOLE [Suspect]
     Indication: DYSPEPSIA
     Dosage: 20 MG / PER DAY / UNKNOWN
     Dates: start: 20110525
  14. CODEINE [Suspect]
     Indication: ANALGESIC THERAPY
     Dosage: UNK / UNK / ORAL
     Route: 048
     Dates: start: 2008, end: 2008
  15. LORAZEPAM [Suspect]
     Indication: SEDATION
     Dosage: 1 MG / UNK / ORAL
     Route: 048
     Dates: start: 20110224, end: 20110410
  16. TRAMADOL HYDROCHLORIDE [Suspect]
     Indication: ANALGESIC THERAPY
     Dosage: UNK / UNK / ORAL
     Route: 048
     Dates: start: 20080722
  17. PROCYCLIDINE HCL [Suspect]
     Indication: OCULOGYRIC CRISIS
     Dosage: UNK / UNK / ORAL
     Route: 048
     Dates: start: 1995, end: 1996
  18. DIAZEPAM [Suspect]
     Indication: MYALGIA
     Dosage: 8 MG / PER DAY / ORAL
     Route: 048

REACTIONS (42)
  - Serotonin syndrome [None]
  - Suicidal ideation [None]
  - Paraesthesia [None]
  - Hallucination [None]
  - Dyspnoea [None]
  - Dissociation [None]
  - Decreased appetite [None]
  - Drug interaction [None]
  - Exposure during pregnancy [None]
  - Pallor [None]
  - Muscle rigidity [None]
  - Musculoskeletal stiffness [None]
  - Speech disorder [None]
  - Depersonalisation [None]
  - Tinnitus [None]
  - Eye pain [None]
  - Swollen tongue [None]
  - Muscle spasms [None]
  - Blood sodium decreased [None]
  - Vision blurred [None]
  - Emotional disorder [None]
  - Gastric pH decreased [None]
  - Feeling jittery [None]
  - Pruritus [None]
  - Hyperhidrosis [None]
  - Indifference [None]
  - Tremor [None]
  - Cyanosis [None]
  - Hypoaesthesia oral [None]
  - Paraesthesia [None]
  - Parosmia [None]
  - Dizziness [None]
  - Fatigue [None]
  - Incontinence [None]
  - Urinary retention [None]
  - Hypoaesthesia [None]
  - Swelling face [None]
  - Lip swelling [None]
  - VIIth nerve paralysis [None]
  - Myalgia [None]
  - Gait disturbance [None]
  - Poisoning [None]
